FAERS Safety Report 18467003 (Version 1)
Quarter: 2020Q4

REPORT INFORMATION
  Report Type: Spontaneous
  Country: SE (occurrence: SE)
  Receive Date: 20201105
  Receipt Date: 20201105
  Transmission Date: 20210114
  Serious: Yes (Other)
  Sender: FDA-Public Use
  Company Number: SE-TEVA-2020-SE-1845036

PATIENT
  Age: 35 Year
  Sex: Female
  Weight: 108 kg

DRUGS (2)
  1. AJOVY [Suspect]
     Active Substance: FREMANEZUMAB-VFRM
     Indication: MIGRAINE
     Route: 065
     Dates: end: 202009
  2. LEVAXIN [Concomitant]
     Active Substance: LEVOTHYROXINE SODIUM
     Route: 065
     Dates: start: 2011

REACTIONS (2)
  - Dysphoria [Unknown]
  - Suicidal ideation [Unknown]

NARRATIVE: CASE EVENT DATE: 2020
